FAERS Safety Report 19943463 (Version 1)
Quarter: 2021Q4

REPORT INFORMATION
  Report Type: Spontaneous
  Country: US (occurrence: US)
  Receive Date: 20211008
  Receipt Date: 20211008
  Transmission Date: 20220303
  Serious: No
  Sender: FDA-Public Use
  Company Number: None

PATIENT
  Age: 25 Year
  Sex: Female

DRUGS (9)
  1. DIAZEPAM [Suspect]
     Active Substance: DIAZEPAM
     Indication: Muscle tightness
     Dosage: ?          QUANTITY:1 SUPPOSITORY(IES);
     Route: 067
     Dates: start: 20211001, end: 20211007
  2. OZEMPIC [Concomitant]
     Active Substance: SEMAGLUTIDE
  3. ATORVISTATIN [Concomitant]
  4. CPAP MACHINE [Concomitant]
  5. ACETAMINOPHEN\BUTALBITAL\CAFFEINE [Concomitant]
     Active Substance: ACETAMINOPHEN\BUTALBITAL\CAFFEINE
  6. CRANBERRY SUPPLEMENT [Concomitant]
  7. WOMEN^S MULTIVITAMIN [Concomitant]
  8. DIGESTIVE SUPPLEMENT [Concomitant]
  9. CLARITIN [Concomitant]
     Active Substance: LORATADINE

REACTIONS (3)
  - Dysmenorrhoea [None]
  - Vulvovaginal burning sensation [None]
  - Vulvovaginal pruritus [None]

NARRATIVE: CASE EVENT DATE: 20211007
